FAERS Safety Report 5080896-3 (Version None)
Quarter: 2006Q3

REPORT INFORMATION
  Report Type: 
  Country: None (occurrence: None)
  Receive Date: 20060810
  Receipt Date: 20060726
  Transmission Date: 20061208
  Serious: Yes (Hospitalization)
  Sender: FDA-Public Use
  Company Number: 6024214F

PATIENT
  Age: 63 Year
  Sex: Female

DRUGS (2)
  1. NIASPAN [Suspect]
     Indication: HYPERCHOLESTEROLAEMIA
     Dosage: 500 MG QD PO
     Route: 048
     Dates: start: 20060517, end: 20060518
  2. LEVOTHYROXINE SODIUM [Concomitant]

REACTIONS (2)
  - MYOCARDIAL INFARCTION [None]
  - URTICARIA [None]
